FAERS Safety Report 21809567 (Version 1)
Quarter: 2023Q1

REPORT INFORMATION
  Report Type: Spontaneous
  Country: US (occurrence: US)
  Receive Date: 20230103
  Receipt Date: 20230103
  Transmission Date: 20230418
  Serious: No
  Sender: FDA-Public Use
  Company Number: US-AUROBINDO-AUR-APL-2022-050455

PATIENT
  Age: 60 Year
  Sex: Female
  Weight: 99.336 kg

DRUGS (1)
  1. CETIRIZINE HYDROCHLORIDE [Suspect]
     Active Substance: CETIRIZINE HYDROCHLORIDE
     Indication: Oropharyngeal pain
     Dosage: UNK
     Route: 065
     Dates: start: 20221116

REACTIONS (1)
  - Incorrect dose administered [Unknown]
